FAERS Safety Report 17029306 (Version 1)
Quarter: 2019Q4

REPORT INFORMATION
  Report Type: Report from Study
  Country: CA (occurrence: CA)
  Receive Date: 20191114
  Receipt Date: 20191114
  Transmission Date: 20200122
  Serious: Yes (Other)
  Sender: FDA-Public Use
  Company Number: CA-ORION CORPORATION ORION PHARMA-TREX2019-5377

PATIENT
  Age: 42 Year
  Sex: Male

DRUGS (9)
  1. METHOTREXATE (TRADE NAME UNKNOWN) [Suspect]
     Active Substance: METHOTREXATE
     Indication: PRODUCT USED FOR UNKNOWN INDICATION
     Route: 065
  2. COSENTYX [Suspect]
     Active Substance: SECUKINUMAB
     Route: 065
  3. COSENTYX [Suspect]
     Active Substance: SECUKINUMAB
     Route: 058
  4. COSENTYX [Suspect]
     Active Substance: SECUKINUMAB
     Route: 058
  5. COSENTYX [Suspect]
     Active Substance: SECUKINUMAB
     Indication: PSORIASIS
     Route: 058
  6. COSENTYX [Suspect]
     Active Substance: SECUKINUMAB
     Route: 058
  7. ACITRETIN. [Concomitant]
     Active Substance: ACITRETIN
     Route: 065
  8. BETAMETHASONE DIPROPIONATE;CALCIPOTRIOL [Concomitant]
     Route: 065
  9. CICLOSPORIN [Suspect]
     Active Substance: CYCLOSPORINE
     Indication: PRODUCT USED FOR UNKNOWN INDICATION
     Route: 065

REACTIONS (9)
  - Rhinorrhoea [Unknown]
  - Skin discolouration [Unknown]
  - Lower respiratory tract infection [Unknown]
  - Sexual dysfunction [Unknown]
  - Cough [Unknown]
  - Erythema [Unknown]
  - Orchitis [Unknown]
  - Sinusitis [Unknown]
  - Nasopharyngitis [Unknown]
